FAERS Safety Report 25819497 (Version 4)
Quarter: 2025Q4

REPORT INFORMATION
  Report Type: Spontaneous
  Country: US (occurrence: US)
  Receive Date: 20250918
  Receipt Date: 20251111
  Transmission Date: 20260117
  Serious: No
  Sender: SANOFI AVENTIS
  Company Number: US-SANOFI-02655155

PATIENT
  Age: 77 Year
  Sex: Female

DRUGS (5)
  1. DUPIXENT [Suspect]
     Active Substance: DUPILUMAB
     Indication: Chronic obstructive pulmonary disease
     Dosage: UNK
     Route: 065
  2. DUPIXENT [Suspect]
     Active Substance: DUPILUMAB
     Dosage: 600MG, 1X
     Route: 065
     Dates: start: 20250911, end: 20250911
  3. DUPIXENT [Suspect]
     Active Substance: DUPILUMAB
     Dosage: 300 MG, QOW
     Route: 065
     Dates: start: 202509
  4. ALBUTEROL [Concomitant]
     Active Substance: ALBUTEROL
  5. TRELEGY ELLIPTA [Concomitant]
     Active Substance: FLUTICASONE FUROATE\UMECLIDINIUM BROMIDE\VILANTEROL TRIFENATATE

REACTIONS (9)
  - Dyspnoea [Unknown]
  - Pain [Unknown]
  - Swollen tongue [Unknown]
  - Asthenia [Unknown]
  - Neck pain [Recovered/Resolved]
  - Peripheral swelling [Not Recovered/Not Resolved]
  - Musculoskeletal stiffness [Unknown]
  - Arthralgia [Not Recovered/Not Resolved]
  - Feeding disorder [Unknown]

NARRATIVE: CASE EVENT DATE: 20250801
